FAERS Safety Report 12390338 (Version 1)
Quarter: 2016Q2

REPORT INFORMATION
  Report Type: Report from Study
  Country: PL (occurrence: PL)
  Receive Date: 20160520
  Receipt Date: 20160520
  Transmission Date: 20160815
  Serious: Yes (Other)
  Sender: FDA-Public Use
  Company Number: PHHY2016PL069206

PATIENT
  Age: 49 Year
  Sex: Male

DRUGS (2)
  1. IMATINIB [Suspect]
     Active Substance: IMATINIB
     Indication: PHILADELPHIA CHROMOSOME POSITIVE
  2. IMATINIB [Suspect]
     Active Substance: IMATINIB
     Indication: CHRONIC MYELOID LEUKAEMIA
     Dosage: UNK
     Route: 065
     Dates: start: 20131016

REACTIONS (15)
  - No therapeutic response [Unknown]
  - Bone marrow failure [Unknown]
  - Thrombocytopenia [Unknown]
  - Splenomegaly [Unknown]
  - Arthralgia [Unknown]
  - Skin lesion [Unknown]
  - Influenza like illness [Unknown]
  - Gilbert^s syndrome [Unknown]
  - Hepatomegaly [Unknown]
  - Blood bilirubin increased [Unknown]
  - Haematotoxicity [Unknown]
  - Eye irritation [Unknown]
  - Lacrimation increased [Unknown]
  - Bone pain [Unknown]
  - Visual acuity reduced [Unknown]
